FAERS Safety Report 19088218 (Version 1)
Quarter: 2021Q2

REPORT INFORMATION
  Report Type: Spontaneous
  Country: US (occurrence: US)
  Receive Date: 20210402
  Receipt Date: 20210402
  Transmission Date: 20210717
  Serious: Yes (Hospitalization, Other)
  Sender: FDA-Public Use
  Company Number: US-ALLERGAN-2113725US

PATIENT
  Sex: Male

DRUGS (8)
  1. ENALAPRIL [Concomitant]
     Active Substance: ENALAPRIL
  2. ATORVASTATIN [Concomitant]
     Active Substance: ATORVASTATIN
  3. PANTOPRAZOLE [Suspect]
     Active Substance: PANTOPRAZOLE
     Indication: PRODUCT USED FOR UNKNOWN INDICATION
  4. FLUOXETINE [Concomitant]
     Active Substance: FLUOXETINE HYDROCHLORIDE
  5. HYDROCHLOROTHIAZIDE. [Concomitant]
     Active Substance: HYDROCHLOROTHIAZIDE
  6. ASPIRIN. [Concomitant]
     Active Substance: ASPIRIN
  7. LIPASE;AMYLASE;PROTEASE UNK [Suspect]
     Active Substance: PANCRELIPASE AMYLASE\PANCRELIPASE LIPASE\PANCRELIPASE PROTEASE
     Indication: PANCREATITIS CHRONIC
     Dosage: 5000 UNITS, QD
  8. MESALAZINE UNK [Suspect]
     Active Substance: MESALAMINE
     Indication: INFLAMMATORY BOWEL DISEASE
     Dosage: 4.8 G, QD
     Dates: start: 202007, end: 202008

REACTIONS (9)
  - Febrile neutropenia [Recovered/Resolved]
  - Hypokalaemia [Unknown]
  - Steatorrhoea [Recovering/Resolving]
  - Abdominal pain [Recovering/Resolving]
  - Urinary tract candidiasis [Unknown]
  - Diarrhoea [Recovering/Resolving]
  - Acute kidney injury [Unknown]
  - Hypocalcaemia [Unknown]
  - Hypomagnesaemia [Unknown]
